FAERS Safety Report 6102701-6 (Version None)
Quarter: 2009Q1

REPORT INFORMATION
  Report Type: 
  Country: None (occurrence: None)
  Receive Date: 20090304
  Receipt Date: 20070828
  Transmission Date: 20090719
  Serious: Yes (Disabling)
  Sender: FDA-Public Use
  Company Number: B0481615A

PATIENT
  Age: 68 Year
  Sex: Female
  Weight: 43 kg

DRUGS (14)
  1. REQUIP [Suspect]
     Indication: PARKINSON'S DISEASE
     Dosage: .25MG VARIABLE DOSE
     Route: 048
     Dates: start: 20070705
  2. CARBIDOPA + LEVODOPA [Concomitant]
     Indication: PARKINSON'S DISEASE
     Dosage: 700MG PER DAY
     Route: 048
  3. PERMAX [Concomitant]
     Indication: PARKINSON'S DISEASE
     Dosage: 1500MCG PER DAY
     Route: 048
  4. PRAMIPEXOLE DIHYDROCHLORIDE [Concomitant]
     Indication: PARKINSON'S DISEASE
     Route: 048
  5. CABASER [Concomitant]
     Indication: PARKINSON'S DISEASE
     Dosage: 1MG PER DAY
     Route: 048
  6. HICEE [Concomitant]
     Indication: PARKINSON'S DISEASE
     Dosage: 900MG PER DAY
     Route: 048
  7. ALFAROL [Concomitant]
     Indication: OSTEOPOROSIS
     Dosage: .5MCG PER DAY
     Route: 048
  8. LORCAM [Concomitant]
     Indication: BACK PAIN
     Dosage: 8MG PER DAY
     Route: 048
  9. SELBEX [Concomitant]
     Indication: GASTRIC ULCER
     Dosage: 100MG PER DAY
     Route: 048
  10. TERNELIN [Concomitant]
     Indication: BACK PAIN
     Dosage: 2MG PER DAY
     Route: 048
  11. GASTER D [Concomitant]
     Indication: GASTRIC ULCER
     Dosage: 20MG PER DAY
     Route: 048
  12. FERROMIA [Concomitant]
     Dosage: 50MG PER DAY
     Route: 048
  13. JUVELA N [Concomitant]
     Indication: NEUROPATHY PERIPHERAL
     Dosage: 300MG PER DAY
     Route: 048
  14. LEVODOPA [Concomitant]
     Route: 065

REACTIONS (3)
  - FALL [None]
  - SOMNOLENCE [None]
  - SUDDEN ONSET OF SLEEP [None]
